FAERS Safety Report 15401320 (Version 1)
Quarter: 2018Q3

REPORT INFORMATION
  Report Type: Spontaneous
  Country: DE (occurrence: DE)
  Receive Date: 20180919
  Receipt Date: 20180919
  Transmission Date: 20181010
  Serious: Yes (Disabling)
  Sender: FDA-Public Use
  Company Number: DE-JNJFOC-20180915110

PATIENT
  Age: 29 Year
  Sex: Male
  Weight: 95 kg

DRUGS (2)
  1. MINOXIDIL. [Suspect]
     Active Substance: MINOXIDIL
     Route: 061
  2. MINOXIDIL. [Suspect]
     Active Substance: MINOXIDIL
     Indication: HAIR GROWTH ABNORMAL
     Route: 061
     Dates: start: 2017

REACTIONS (6)
  - Libido decreased [Not Recovered/Not Resolved]
  - Penile pain [Not Recovered/Not Resolved]
  - Testicular pain [Not Recovered/Not Resolved]
  - Semen liquefaction [Not Recovered/Not Resolved]
  - Erectile dysfunction [Not Recovered/Not Resolved]
  - Testicular atrophy [Not Recovered/Not Resolved]

NARRATIVE: CASE EVENT DATE: 2018
